FAERS Safety Report 8435938-1 (Version None)
Quarter: 2012Q2

REPORT INFORMATION
  Report Type: 
  Country: None (occurrence: None)
  Receive Date: 20120614
  Receipt Date: 20120606
  Transmission Date: 20120825
  Serious: Yes (Other)
  Sender: FDA-Public Use
  Company Number: US-SANOFI-AVENTIS-2012SA040562

PATIENT
  Age: 87 Year
  Sex: Male

DRUGS (2)
  1. SOLOSTAR [Suspect]
     Indication: DIABETES MELLITUS
     Dates: start: 20120517
  2. LANTUS [Suspect]
     Indication: DIABETES MELLITUS
     Dosage: DOSE:26 UNIT(S)
     Route: 058
     Dates: start: 20120517

REACTIONS (3)
  - MEMORY IMPAIRMENT [None]
  - MACULAR DEGENERATION [None]
  - BLOOD GLUCOSE INCREASED [None]
